FAERS Safety Report 9812733 (Version 1)
Quarter: 2014Q1

REPORT INFORMATION
  Report Type: Spontaneous
  Country: US (occurrence: US)
  Receive Date: 20140113
  Receipt Date: 20140113
  Transmission Date: 20141002
  Serious: Yes (Other)
  Sender: FDA-Public Use
  Company Number: US-AMGEN-USASP2014001080

PATIENT
  Age: 66 Year
  Sex: Female
  Weight: 58.05 kg

DRUGS (7)
  1. ENBREL [Suspect]
     Indication: RHEUMATOID ARTHRITIS
     Dosage: 50 MG, QWK
     Route: 058
  2. CYMBALTA [Concomitant]
     Dosage: 60 MG, UNK
     Route: 048
  3. TORADOL [Concomitant]
     Dosage: 10 MG, UNK
     Route: 048
  4. METHOTREXATE [Concomitant]
     Dosage: 2.5 MG, UNK
     Route: 048
  5. FENTANYL [Concomitant]
     Dosage: 100 MUG/H EX, UNK
  6. FOLIC ACID [Concomitant]
     Dosage: 1 MG, UNK
     Route: 048
  7. FROVA [Concomitant]
     Dosage: 2.5 MG, UNK
     Route: 048

REACTIONS (3)
  - Foot operation [Unknown]
  - Staphylococcal infection [Unknown]
  - Drug administration error [Unknown]
